FAERS Safety Report 8117695-1 (Version None)
Quarter: 2012Q1

REPORT INFORMATION
  Report Type: 
  Country: None (occurrence: None)
  Receive Date: 20120203
  Receipt Date: 20120203
  Transmission Date: 20120608
  Serious: Yes (Hospitalization, Other)
  Sender: FDA-Public Use
  Company Number: None

PATIENT
  Age: 78 Year
  Sex: Female

DRUGS (4)
  1. PAXIL [Concomitant]
  2. AREDIA [Concomitant]
  3. DECADRON [Concomitant]
  4. REVLIMID [Suspect]
     Indication: MULTIPLE MYELOMA
     Dosage: 25MG QDX21D/28D ORALLY
     Route: 048

REACTIONS (3)
  - ASTHENIA [None]
  - CHILLS [None]
  - PYREXIA [None]
